FAERS Safety Report 14577710 (Version 1)
Quarter: 2018Q1

REPORT INFORMATION
  Report Type: Spontaneous
  Country: RU (occurrence: RU)
  Receive Date: 20180227
  Receipt Date: 20180227
  Transmission Date: 20180509
  Serious: Yes (Other)
  Sender: FDA-Public Use
  Company Number: RU-ASTRAZENECA-2017SF04293

PATIENT
  Age: 65 Year
  Sex: Female
  Weight: 110 kg

DRUGS (12)
  1. FORXIGA [Suspect]
     Active Substance: DAPAGLIFLOZIN
     Indication: TYPE 2 DIABETES MELLITUS
     Route: 048
     Dates: start: 201801
  2. INSULIN [Concomitant]
     Active Substance: INSULIN NOS
  3. ATORVASTATIN [Concomitant]
     Active Substance: ATORVASTATIN
  4. VALS [Concomitant]
     Indication: HYPERTENSION
  5. TIZANIDINE. [Concomitant]
     Active Substance: TIZANIDINE
  6. DIBICOR [Concomitant]
  7. FORXIGA [Suspect]
     Active Substance: DAPAGLIFLOZIN
     Indication: TYPE 2 DIABETES MELLITUS
     Route: 048
     Dates: start: 2017, end: 2017
  8. ANAPRILIN [Concomitant]
     Active Substance: PROPRANOLOL HYDROCHLORIDE
     Indication: HYPERTENSION
  9. BISOPROLOL [Concomitant]
     Active Substance: BISOPROLOL
  10. MOXONIDINE [Concomitant]
     Active Substance: MOXONIDINE
     Indication: HYPERTENSION
  11. THIOCTIC ACID [Concomitant]
     Active Substance: THIOCTIC ACID
  12. INDAPAMIDE. [Concomitant]
     Active Substance: INDAPAMIDE

REACTIONS (2)
  - Visual impairment [Recovered/Resolved]
  - Blood pressure increased [Not Recovered/Not Resolved]
